FAERS Safety Report 9289211 (Version 2)
Quarter: 2013Q2

REPORT INFORMATION
  Report Type: Report from Study
  Country: US (occurrence: US)
  Receive Date: 20130508
  Receipt Date: 20130603
  Transmission Date: 20140414
  Serious: No
  Sender: FDA-Public Use
  Company Number: US-009507513-1304USA017607

PATIENT
  Age: 17 Year
  Sex: Female
  Weight: 71.25 kg

DRUGS (1)
  1. IMPLANON [Suspect]
     Dosage: UNK
     Route: 065
     Dates: start: 20111028, end: 20130429

REACTIONS (2)
  - Medical device complication [Unknown]
  - Medical device removal [Unknown]
